FAERS Safety Report 18585478 (Version 1)
Quarter: 2020Q4

REPORT INFORMATION
  Report Type: Spontaneous
  Country: US (occurrence: US)
  Receive Date: 20201204
  Receipt Date: 20201204
  Transmission Date: 20210114
  Serious: Yes (Death, Hospitalization)
  Sender: FDA-Public Use
  Company Number: None

PATIENT
  Sex: Male

DRUGS (6)
  1. CARVEDILOL. [Concomitant]
     Active Substance: CARVEDILOL
  2. LYRICA [Concomitant]
     Active Substance: PREGABALIN
  3. MULTIVITAM/MINERALS [Concomitant]
  4. PREDISONE [Concomitant]
     Active Substance: PREDNISONE
  5. SPIRONLACT [Concomitant]
  6. XELJANZ [Suspect]
     Active Substance: TOFACITINIB CITRATE
     Indication: COLITIS
     Dosage: ?          OTHER DOSE:1 TAB;?
     Route: 048
     Dates: start: 20190121

REACTIONS (1)
  - Sudden death [None]
